FAERS Safety Report 14841466 (Version 1)
Quarter: 2018Q2

REPORT INFORMATION
  Report Type: Spontaneous
  Country: US (occurrence: US)
  Receive Date: 20180418
  Receipt Date: 20180418
  Transmission Date: 20180711
  Serious: Yes (Death)
  Sender: FDA-Public Use
  Company Number: None

PATIENT
  Age: 49 Year
  Sex: Male

DRUGS (5)
  1. PREDNISONE 5 MG [Concomitant]
     Active Substance: PREDNISONE
  2. XGEVA [Concomitant]
     Active Substance: DENOSUMAB
  3. TAXOTERE [Suspect]
     Active Substance: DOCETAXEL
     Indication: PROSTATE CANCER
     Dosage: ?          OTHER FREQUENCY:DAY 1 OF 21 DAYS;?
     Route: 042
     Dates: start: 20180117
  4. ZYTIGA [Concomitant]
     Active Substance: ABIRATERONE ACETATE
  5. LUPRON DEPOT ADULT 7.5MG [Concomitant]

REACTIONS (1)
  - Death [None]

NARRATIVE: CASE EVENT DATE: 20180202
